FAERS Safety Report 8286834-4 (Version None)
Quarter: 2012Q2

REPORT INFORMATION
  Report Type: 
  Country: None (occurrence: None)
  Receive Date: 20120416
  Receipt Date: 20120403
  Transmission Date: 20120825
  Serious: No
  Sender: FDA-Public Use
  Company Number: DE-ELI_LILLY_AND_COMPANY-DE201204001016

PATIENT
  Sex: Female

DRUGS (4)
  1. CYMBALTA [Suspect]
     Indication: PAIN
     Dosage: 30 MG, UNK
     Dates: start: 20090101
  2. CYMBALTA [Suspect]
     Dosage: 60 MG, UNK
  3. CYMBALTA [Suspect]
     Dosage: 60 MG, UNK
  4. CYMBALTA [Suspect]
     Dosage: 90 MG, UNK

REACTIONS (3)
  - DRUG WITHDRAWAL SYNDROME [None]
  - BLOOD ALKALINE PHOSPHATASE INCREASED [None]
  - VITAMIN D DECREASED [None]
